FAERS Safety Report 16128409 (Version 1)
Quarter: 2019Q1

REPORT INFORMATION
  Report Type: Spontaneous
  Country: US (occurrence: US)
  Receive Date: 20190225
  Receipt Date: 20190225
  Transmission Date: 20190418
  Serious: No
  Sender: FDA-Public Use
  Company Number: None

PATIENT
  Age: 70 Year
  Sex: Male

DRUGS (1)
  1. STELARA [Suspect]
     Active Substance: USTEKINUMAB
     Indication: PSORIASIS
     Dosage: ?          OTHER
     Route: 058
     Dates: start: 201801

REACTIONS (2)
  - Therapy cessation [None]
  - Nasopharyngitis [None]

NARRATIVE: CASE EVENT DATE: 20190225
